FAERS Safety Report 4959193-X (Version None)
Quarter: 2006Q1

REPORT INFORMATION
  Report Type: 
  Country: None (occurrence: None)
  Receive Date: 20060127
  Receipt Date: 20060127
  Transmission Date: 20060701
  Serious: Yes (Other)
  Sender: FDA-Public Use
  Company Number: 2005-US-01104

PATIENT
  Age: 17 Year
  Sex: Female

DRUGS (1)
  1. CLOZAPINE [Suspect]
     Indication: SCHIZOPHRENIA, CATATONIC TYPE
     Dosage: ORAL
     Route: 048
     Dates: start: 20051101, end: 20051112

REACTIONS (3)
  - CATHETER RELATED INFECTION [None]
  - GRANULOCYTOPENIA [None]
  - LEUKOPENIA [None]
